FAERS Safety Report 9200080 (Version 1)
Quarter: 2013Q1

REPORT INFORMATION
  Report Type: Spontaneous
  Country: BR (occurrence: BR)
  Receive Date: 20130329
  Receipt Date: 20130329
  Transmission Date: 20140127
  Serious: Yes (Other)
  Sender: FDA-Public Use
  Company Number: BR-SANOFI-AVENTIS-2013SA030694

PATIENT
  Age: 79 Year
  Sex: Female
  Weight: 64 kg

DRUGS (4)
  1. STILNOX [Suspect]
     Indication: INSOMNIA
     Route: 048
     Dates: start: 20130227, end: 20130227
  2. CALTREN [Concomitant]
     Indication: HYPERTENSION
     Route: 048
     Dates: start: 2011
  3. NEBILET [Concomitant]
     Indication: HYPERTENSION
     Route: 048
     Dates: start: 2011
  4. ATACAND [Concomitant]
     Indication: HYPERTENSION
     Route: 048
     Dates: start: 2011

REACTIONS (6)
  - Cerebral haematoma [Recovered/Resolved]
  - Haemorrhage [Recovered/Resolved]
  - Head injury [Recovered/Resolved]
  - Anaemia [Recovered/Resolved]
  - Fall [Recovered/Resolved]
  - Labyrinthitis [Recovered/Resolved]
